FAERS Safety Report 5897657-5 (Version None)
Quarter: 2008Q3

REPORT INFORMATION
  Report Type: 
  Country: None (occurrence: None)
  Receive Date: 20080925
  Receipt Date: 20080915
  Transmission Date: 20090109
  Serious: Yes (Hospitalization)
  Sender: FDA-Public Use
  Company Number: US-ROCHE-581412

PATIENT
  Sex: Female
  Weight: 49 kg

DRUGS (3)
  1. CAPECITABINE [Suspect]
     Dosage: STRENGTH: 500 MG AND 150 MG. COMPLETED FIRST CYCLE.
     Route: 065
  2. CAPECITABINE [Suspect]
     Dosage: SECOND CYCLE
     Route: 065
  3. GEMZAR [Concomitant]
     Dosage: STRENGTH: 500 MG AND 150 MG, TWO WEEKS ON, 1 WEEK OFF
     Dates: start: 20080724

REACTIONS (5)
  - DEHYDRATION [None]
  - DIARRHOEA [None]
  - INFECTION [None]
  - MUCOSAL INFLAMMATION [None]
  - PYREXIA [None]
